FAERS Safety Report 17444217 (Version 2)
Quarter: 2021Q4

REPORT INFORMATION
  Report Type: Spontaneous
  Country: SK (occurrence: SK)
  Receive Date: 20200221
  Receipt Date: 20211221
  Transmission Date: 20220303
  Serious: Yes (Hospitalization)
  Sender: FDA-Public Use
  Company Number: None

PATIENT
  Age: 49 Year
  Sex: Female
  Weight: 54 kg

DRUGS (1)
  1. TERBINAFINE [Suspect]
     Active Substance: TERBINAFINE
     Indication: Onychomycosis
     Dosage: 250 MG, QD (1-0-0)
     Route: 065
     Dates: start: 201911, end: 202001

REACTIONS (4)
  - Pruritus [Recovered/Resolved]
  - Rash macular [Recovered/Resolved]
  - Alopecia [Recovered/Resolved]
  - Visual impairment [Recovered/Resolved]
